FAERS Safety Report 4733572-8 (Version None)
Quarter: 2005Q3

REPORT INFORMATION
  Report Type: 
  Country: None (occurrence: None)
  Receive Date: 20050729
  Receipt Date: 20050714
  Transmission Date: 20060218
  Serious: Yes (Hospitalization)
  Sender: FDA-Public Use
  Company Number: 215897

PATIENT
  Age: 68 Year

DRUGS (6)
  1. MABTHERA (RITUXIMAB) CONC FOR SOLUTION FOR INFUSION [Suspect]
     Indication: NON-HODGKIN'S LYMPHOMA
  2. CYCLOPHOSPHAMIDE [Concomitant]
  3. DOXORUBICIN HCL [Concomitant]
  4. VINCRISTINE [Concomitant]
  5. PREDNISONE [Concomitant]
  6. PEGFILGRASTIM (PEGFILGSRATIM) [Concomitant]

REACTIONS (1)
  - PNEUMONIA PRIMARY ATYPICAL [None]
